FAERS Safety Report 17062848 (Version 1)
Quarter: 2019Q4

REPORT INFORMATION
  Report Type: Spontaneous
  Country: US (occurrence: US)
  Receive Date: 20191122
  Receipt Date: 20191122
  Transmission Date: 20200122
  Serious: No
  Sender: FDA-Public Use
  Company Number: US-APOTEX-2019AP024246

PATIENT
  Age: 62 Year
  Sex: Female

DRUGS (2)
  1. IMATINIB. [Suspect]
     Active Substance: IMATINIB MESYLATE
     Indication: GASTROINTESTINAL STROMAL TUMOUR
     Dosage: 400 MG, DAILY
     Route: 065
  2. IMATINIB. [Suspect]
     Active Substance: IMATINIB MESYLATE
     Dosage: 250 MG, QD
     Route: 065

REACTIONS (8)
  - Condition aggravated [Recovered/Resolved]
  - Skin reaction [Recovered/Resolved]
  - Rash pruritic [Recovered/Resolved]
  - Periorbital swelling [Recovered/Resolved]
  - Eczema [Recovered/Resolved]
  - Drug hypersensitivity [Recovered/Resolved]
  - Rash vesicular [Recovered/Resolved]
  - Rash maculo-papular [Recovered/Resolved]
